FAERS Safety Report 25433454 (Version 1)
Quarter: 2025Q2

REPORT INFORMATION
  Report Type: Spontaneous
  Country: US (occurrence: None)
  Receive Date: 20250612
  Receipt Date: 20250612
  Transmission Date: 20250716
  Serious: Yes (Hospitalization)
  Sender: FDA-CTU
  Company Number: None

PATIENT
  Age: 70 Year
  Sex: Male

DRUGS (9)
  1. ADEMPAS [Suspect]
     Active Substance: RIOCIGUAT
     Indication: Pulmonary hypertension
     Dosage: FREQUENCY : 3 TIMES A DAY;?
     Route: 048
     Dates: start: 20241218, end: 20250520
  2. PRADAXA [Suspect]
     Active Substance: DABIGATRAN ETEXILATE MESYLATE
  3. apixaban, [Concomitant]
  4. levetiracetam, [Concomitant]
  5. furosemide, [Concomitant]
  6. famotidine, [Concomitant]
  7. flonase, [Concomitant]
  8. lisinopril, [Concomitant]
  9. ATORVASTATIN [Suspect]
     Active Substance: ATORVASTATIN

REACTIONS (1)
  - Subdural haematoma [None]

NARRATIVE: CASE EVENT DATE: 20250515
